FAERS Safety Report 5215316-9 (Version None)
Quarter: 2007Q1

REPORT INFORMATION
  Report Type: 
  Country: None (occurrence: None)
  Receive Date: 20070116
  Receipt Date: 20070111
  Transmission Date: 20070707
  Serious: Yes (Hospitalization, Other)
  Sender: FDA-Public Use
  Company Number: HQWYE128227MAY04

PATIENT
  Age: 74 Year
  Sex: Female

DRUGS (6)
  1. RAPAMUNE [Suspect]
     Indication: IMMUNOSUPPRESSION
     Dosage: 2 MG 1X PER 1 DAY
     Route: 048
     Dates: start: 20040123
  2. LORAZEPAM [Concomitant]
  3. RANITIDINE [Concomitant]
  4. OMEPRAZOLE [Concomitant]
  5. VALACYCLOVIR [Concomitant]
  6. TENORMIN [Concomitant]

REACTIONS (6)
  - GRAFT COMPLICATION [None]
  - HYDRONEPHROSIS [None]
  - INFECTED LYMPHOCELE [None]
  - OEDEMA PERIPHERAL [None]
  - PSEUDOMONAS INFECTION [None]
  - STAPHYLOCOCCAL INFECTION [None]
